FAERS Safety Report 8535899 (Version 2)
Quarter: 2013Q1

REPORT INFORMATION
  Report Type: Spontaneous
  Country: US (occurrence: US)
  Receive Date: 20120430
  Receipt Date: 20130220
  Transmission Date: 20140127
  Serious: Yes (Hospitalization, Other)
  Sender: FDA-Public Use
  Company Number: US-JNJFOC-20101007444

PATIENT
  Sex: Female

DRUGS (19)
  1. LEVAQUIN [Suspect]
     Indication: PULMONARY CONGESTION
     Route: 048
     Dates: start: 200911
  2. LEVAQUIN [Suspect]
     Indication: PULMONARY CONGESTION
     Route: 048
  3. LEVAQUIN [Suspect]
     Indication: PULMONARY CONGESTION
     Route: 048
  4. LEVAQUIN [Suspect]
     Indication: RHINITIS
     Route: 048
  5. LEVAQUIN [Suspect]
     Indication: RHINITIS
     Route: 048
     Dates: start: 200911
  6. LEVAQUIN [Suspect]
     Indication: RHINITIS
     Route: 048
  7. LEVAQUIN [Suspect]
     Indication: SINUSITIS
     Route: 048
     Dates: start: 200911
  8. LEVAQUIN [Suspect]
     Indication: SINUSITIS
     Route: 048
  9. LEVAQUIN [Suspect]
     Indication: SINUSITIS
     Route: 048
  10. LEVAQUIN [Suspect]
     Indication: BRONCHITIS
     Route: 048
  11. LEVAQUIN [Suspect]
     Indication: BRONCHITIS
     Route: 048
  12. LEVAQUIN [Suspect]
     Indication: BRONCHITIS
     Route: 048
     Dates: start: 200911
  13. LEVAQUIN [Suspect]
     Indication: UPPER RESPIRATORY TRACT INFECTION
     Route: 048
  14. LEVAQUIN [Suspect]
     Indication: UPPER RESPIRATORY TRACT INFECTION
     Route: 048
  15. LEVAQUIN [Suspect]
     Indication: UPPER RESPIRATORY TRACT INFECTION
     Route: 048
     Dates: start: 200911
  16. LEVAQUIN [Suspect]
     Indication: ASTHMA
     Route: 042
  17. SOLU-MEDROL [Suspect]
     Indication: ASTHMA
     Route: 042
  18. PREDNISONE [Suspect]
     Indication: PRODUCT USED FOR UNKNOWN INDICATION
     Route: 048
  19. BUDESONIDE [Suspect]
     Indication: ASTHMA
     Route: 055

REACTIONS (6)
  - Trigger finger [Recovering/Resolving]
  - Tendon rupture [Unknown]
  - Tendon rupture [Unknown]
  - Tendonitis [Unknown]
  - Depression [Recovering/Resolving]
  - Anxiety [Unknown]
